FAERS Safety Report 4771754-X (Version None)
Quarter: 2005Q3

REPORT INFORMATION
  Report Type: 
  Country: None (occurrence: None)
  Receive Date: 20050916
  Receipt Date: 20050906
  Transmission Date: 20060218
  Serious: Yes (Other)
  Sender: FDA-Public Use
  Company Number: 2005UW13530

PATIENT
  Age: 64 Year
  Sex: Female

DRUGS (2)
  1. PRILOSEC [Suspect]
     Indication: DYSPEPSIA
     Route: 048
  2. ACID PHLEX [Suspect]
     Indication: DYSPEPSIA

REACTIONS (2)
  - BLADDER NEOPLASM [None]
  - DYSPEPSIA [None]
